FAERS Safety Report 16950996 (Version 2)
Quarter: 2019Q4

REPORT INFORMATION
  Report Type: Report from Study
  Country: JP (occurrence: JP)
  Receive Date: 20191023
  Receipt Date: 20191112
  Transmission Date: 20200122
  Serious: Yes (Hospitalization)
  Sender: FDA-Public Use
  Company Number: JP-EISAI MEDICAL RESEARCH-EC-2018-040007

PATIENT
  Age: 74 Year
  Sex: Female

DRUGS (6)
  1. CONSTAN [Concomitant]
  2. VALPROATE SODIUM. [Concomitant]
     Active Substance: VALPROATE SODIUM
  3. FYCOMPA [Suspect]
     Active Substance: PERAMPANEL
     Indication: FOCAL DYSCOGNITIVE SEIZURES
     Route: 048
     Dates: start: 20180423, end: 20180508
  4. ZOLPIDEM TARTRATE. [Concomitant]
     Active Substance: ZOLPIDEM TARTRATE
  5. CEFTRIAXONE SODIUM HYDRATE [Concomitant]
     Active Substance: CEFTRIAXONE SODIUM
  6. PAXIL CR [Concomitant]
     Active Substance: PAROXETINE HYDROCHLORIDE

REACTIONS (2)
  - Altered state of consciousness [Recovered/Resolved]
  - Urinary tract infection [Recovering/Resolving]

NARRATIVE: CASE EVENT DATE: 20180430
